FAERS Safety Report 18152903 (Version 2)
Quarter: 2021Q2

REPORT INFORMATION
  Report Type: Spontaneous
  Country: US (occurrence: US)
  Receive Date: 20200814
  Receipt Date: 20210603
  Transmission Date: 20210717
  Serious: Yes (Other)
  Sender: FDA-Public Use
  Company Number: US-VERTEX PHARMACEUTICALS-2020-011995

PATIENT
  Age: 58 Year
  Sex: Female

DRUGS (21)
  1. TRIKAFTA [Suspect]
     Active Substance: ELEXACAFTOR\IVACAFTOR\TEZACAFTOR
     Indication: CYSTIC FIBROSIS
     Dosage: 2 TAB IN AM; 1 TAB IN PM; BID
     Route: 048
     Dates: start: 20200211
  2. NEXIUM I.V. [Concomitant]
     Active Substance: ESOMEPRAZOLE SODIUM
     Indication: DYSPEPSIA
  3. FLUOXETINE [Concomitant]
     Active Substance: FLUOXETINE HYDROCHLORIDE
     Indication: DEPRESSION
  4. BASAGLAR [Concomitant]
     Active Substance: INSULIN GLARGINE
     Indication: TYPE 2 DIABETES MELLITUS
  5. XARELTO [Concomitant]
     Active Substance: RIVAROXABAN
  6. VITRON C [Concomitant]
     Active Substance: ASCORBIC ACID\IRON
  7. MIRALAX [Concomitant]
     Active Substance: POLYETHYLENE GLYCOL 3350
     Indication: CONSTIPATION
  8. TRIKAFTA [Suspect]
     Active Substance: ELEXACAFTOR\IVACAFTOR\TEZACAFTOR
     Dosage: NO NIGHT DOSE ON MONDAY, WEDNESDAY, FRIDAY
     Route: 048
     Dates: start: 2020, end: 2020
  9. ACETAMINOPHEN. [Concomitant]
     Active Substance: ACETAMINOPHEN
     Indication: PAIN
  10. CREON [Concomitant]
     Active Substance: PANCRELIPASE AMYLASE\PANCRELIPASE LIPASE\PANCRELIPASE PROTEASE
     Indication: PANCREATIC FAILURE
  11. AMOXYCILLIN [AMOXICILLIN] [Concomitant]
  12. TRIKAFTA [Suspect]
     Active Substance: ELEXACAFTOR\IVACAFTOR\TEZACAFTOR
     Dosage: TAKES ALL AM DOSES, ONLY TAKES 5 DOSES PER WEEK AT NIGHT
     Route: 048
  13. PULMOZYME [Concomitant]
     Active Substance: DORNASE ALFA
  14. LORAZEPAM. [Concomitant]
     Active Substance: LORAZEPAM
     Indication: ANXIETY
  15. NOVOLOG [Concomitant]
     Active Substance: INSULIN ASPART
     Indication: TYPE 2 DIABETES MELLITUS
  16. ADVAIR HFA [Concomitant]
     Active Substance: FLUTICASONE PROPIONATE\SALMETEROL XINAFOATE
     Indication: ASTHMA
  17. LORAZEPAM. [Concomitant]
     Active Substance: LORAZEPAM
     Indication: INSOMNIA
  18. CAYSTON [Concomitant]
     Active Substance: AZTREONAM
     Indication: CYSTIC FIBROSIS
  19. AZITHROMYCIN ANHYDROUS. [Concomitant]
     Active Substance: AZITHROMYCIN ANHYDROUS
     Indication: BACTERIAL INFECTION
  20. TRIKAFTA [Suspect]
     Active Substance: ELEXACAFTOR\IVACAFTOR\TEZACAFTOR
     Dosage: NO NIGHT TIME DOSE ON MONDAY, FRIDAY
     Route: 048
     Dates: start: 2020
  21. ACETAMINOPHEN. [Concomitant]
     Active Substance: ACETAMINOPHEN
     Indication: PYREXIA

REACTIONS (7)
  - Finger deformity [Not Recovered/Not Resolved]
  - Osteoarthritis [Not Recovered/Not Resolved]
  - Adverse event following immunisation [Unknown]
  - Pulmonary function test decreased [Unknown]
  - Joint swelling [Not Recovered/Not Resolved]
  - Arthralgia [Not Recovered/Not Resolved]
  - Inflammatory marker increased [Not Recovered/Not Resolved]

NARRATIVE: CASE EVENT DATE: 202002
